FAERS Safety Report 24810489 (Version 1)
Quarter: 2025Q1

REPORT INFORMATION
  Report Type: Spontaneous
  Country: US (occurrence: None)
  Receive Date: 20250104
  Receipt Date: 20250104
  Transmission Date: 20250409
  Serious: Yes (Other)
  Sender: FDA-CTU
  Company Number: None

PATIENT
  Age: 57 Year
  Sex: Male
  Weight: 105.75 kg

DRUGS (10)
  1. BUPRENORPHINE [Suspect]
     Active Substance: BUPRENORPHINE
     Indication: Pain
     Dosage: 30 TABLETS 3 TIMES A DAY SUBLINGUAL
     Route: 060
     Dates: start: 20210318, end: 20250104
  2. NADOLOL [Concomitant]
     Active Substance: NADOLOL
  3. lisinopryl [Concomitant]
  4. LEVOTHYROXINE [Concomitant]
     Active Substance: LEVOTHYROXINE
  5. atoravastin [Concomitant]
  6. alprolozam [Concomitant]
  7. sitriline [Concomitant]
  8. VITAMINS [Concomitant]
     Active Substance: VITAMINS
  9. VITAMIN D3 [Concomitant]
     Active Substance: CHOLECALCIFEROL
  10. ZINC [Concomitant]
     Active Substance: ZINC

REACTIONS (2)
  - Dental caries [None]
  - Dental caries [None]

NARRATIVE: CASE EVENT DATE: 20230120
